FAERS Safety Report 8274524-3 (Version None)
Quarter: 2012Q2

REPORT INFORMATION
  Report Type: 
  Country: None (occurrence: None)
  Receive Date: 20120411
  Receipt Date: 20120327
  Transmission Date: 20120825
  Serious: Yes (Life-Threatening, Hospitalization, Other)
  Sender: FDA-Public Use
  Company Number: GB-WATSON-2012-05788

PATIENT
  Age: 78 Year
  Sex: Male

DRUGS (3)
  1. FUSIDIC ACID [Suspect]
     Indication: PNEUMONIA
     Dosage: UNKNOWN
     Route: 065
  2. FLUCLOXACILLIN [Concomitant]
     Indication: PNEUMONIA
     Route: 065
  3. SIMVASTATIN [Suspect]
     Indication: PRODUCT USED FOR UNKNOWN INDICATION
     Dosage: UNKNOWN
     Route: 065

REACTIONS (5)
  - BLOOD CREATINE PHOSPHOKINASE INCREASED [None]
  - POTENTIATING DRUG INTERACTION [None]
  - MYOPATHY [None]
  - CHROMATURIA [None]
  - MOBILITY DECREASED [None]
